FAERS Safety Report 18442936 (Version 8)
Quarter: 2021Q3

REPORT INFORMATION
  Report Type: Report from Study
  Country: US (occurrence: US)
  Receive Date: 20201029
  Receipt Date: 20210712
  Transmission Date: 20211014
  Serious: Yes (Other)
  Sender: FDA-Public Use
  Company Number: NVSC2020US290245

PATIENT
  Age: 69 Year
  Sex: Male

DRUGS (3)
  1. ENTRESTO [Suspect]
     Active Substance: SACUBITRIL\VALSARTAN
     Dosage: 100 MG, BID (49.51MG)
     Route: 065
  2. ENTRESTO [Suspect]
     Active Substance: SACUBITRIL\VALSARTAN
     Indication: PRODUCT USED FOR UNKNOWN INDICATION
     Dosage: 200 MG, BID (97/103 MG)
     Route: 048
     Dates: start: 202006
  3. ENTRESTO [Suspect]
     Active Substance: SACUBITRIL\VALSARTAN
     Dosage: 50 MG, BID (24/26 MG)
     Route: 065

REACTIONS (13)
  - Nasopharyngitis [Unknown]
  - Weight increased [Unknown]
  - Dizziness [Recovered/Resolved]
  - Blood disorder [Recovering/Resolving]
  - Arthralgia [Recovering/Resolving]
  - Asthenia [Unknown]
  - Spinal compression fracture [Not Recovered/Not Resolved]
  - Fatigue [Unknown]
  - Feeling abnormal [Unknown]
  - Hunger [Unknown]
  - Dyspnoea [Unknown]
  - Hypersensitivity [Unknown]
  - Otolithiasis [Unknown]

NARRATIVE: CASE EVENT DATE: 202006
